FAERS Safety Report 22141424 (Version 1)
Quarter: 2023Q1

REPORT INFORMATION
  Report Type: Spontaneous
  Country: US (occurrence: US)
  Receive Date: 20230327
  Receipt Date: 20230327
  Transmission Date: 20230417
  Serious: No
  Sender: FDA-Public Use
  Company Number: US-PFIZER INC-202300119652

PATIENT
  Age: 17 Year
  Sex: Male
  Weight: 68.04 kg

DRUGS (1)
  1. GENOTROPIN [Suspect]
     Active Substance: SOMATROPIN
     Indication: Blood growth hormone
     Dosage: 3 MG, 1X/DAY

REACTIONS (3)
  - Drug dose omission by device [Unknown]
  - Device leakage [Unknown]
  - Device issue [Unknown]
